FAERS Safety Report 4756141-2 (Version None)
Quarter: 2005Q3

REPORT INFORMATION
  Report Type: 
  Country: None (occurrence: None)
  Receive Date: 20050826
  Receipt Date: 20041221
  Transmission Date: 20060218
  Serious: Yes (Life-Threatening, Hospitalization)
  Sender: FDA-Public Use
  Company Number: USA-2004-0018094

PATIENT
  Age: 48 Year
  Sex: Female

DRUGS (5)
  1. OXYCONTIN [Suspect]
     Indication: PAIN
     Dosage: 100 MG, Q12H
     Dates: start: 20020619
  2. REMERON [Concomitant]
  3. ZOLOFT [Concomitant]
  4. PERCOCET [Concomitant]
  5. DILANTIN [Concomitant]

REACTIONS (1)
  - GRAND MAL CONVULSION [None]
